FAERS Safety Report 11235391 (Version 1)
Quarter: 2015Q3

REPORT INFORMATION
  Report Type: Spontaneous
  Country: US (occurrence: US)
  Receive Date: 20150702
  Receipt Date: 20150702
  Transmission Date: 20151125
  Serious: No
  Sender: FDA-Public Use
  Company Number: CHPA2015US007955

PATIENT
  Age: 29 Year
  Sex: Female

DRUGS (1)
  1. VOLTAREN [Suspect]
     Active Substance: DICLOFENAC SODIUM
     Indication: BACK PAIN
     Dosage: 1 G, ONCE/SINGLE
     Route: 061
     Dates: start: 20150626, end: 20150626

REACTIONS (5)
  - Metrorrhagia [Not Recovered/Not Resolved]
  - Product use issue [Unknown]
  - Menstrual disorder [Not Recovered/Not Resolved]
  - Drug administered at inappropriate site [Unknown]
  - Incorrect dose administered [Unknown]

NARRATIVE: CASE EVENT DATE: 20150626
